FAERS Safety Report 8855370 (Version 1)
Quarter: 2012Q4

REPORT INFORMATION
  Report Type: 
  Country: US (occurrence: US)
  Receive Date: 20121023
  Receipt Date: 20121023
  Transmission Date: 20130627
  Serious: No
  Sender: FDA-Public Use
  Company Number: US-AMGEN-USASP2012015171

PATIENT
  Age: 51 Year
  Sex: Female

DRUGS (6)
  1. ENBREL [Suspect]
     Indication: PRODUCT USED FOR UNKNOWN INDICATION
     Dosage: 50 mg, qwk
     Route: 058
     Dates: start: 201102
  2. CALCIUM 600 [Concomitant]
     Dosage: UNK
  3. IBUPROFEN [Concomitant]
     Dosage: 200 mg, UNK
  4. ULTRAVATE                          /00008504/ [Concomitant]
     Dosage: 0.05 %, UNK
  5. CLOBEX                             /00012002/ [Concomitant]
     Dosage: 0.05 %, UNK
  6. LIDEX [Concomitant]
     Dosage: 0.05 UNK, UNK

REACTIONS (6)
  - Increased tendency to bruise [Unknown]
  - Drug effect incomplete [Unknown]
  - Injection site mass [Unknown]
  - Injection site reaction [Unknown]
  - Injection site pruritus [Unknown]
  - Injection site bruising [Unknown]
